FAERS Safety Report 13407941 (Version 1)
Quarter: 2017Q2

REPORT INFORMATION
  Report Type: Spontaneous
  Country: GB (occurrence: GB)
  Receive Date: 20170406
  Receipt Date: 20170406
  Transmission Date: 20170830
  Serious: Yes (Other)
  Sender: FDA-Public Use
  Company Number: GB-ACCORD-049823

PATIENT
  Age: 68 Year
  Sex: Male
  Weight: 88.9 kg

DRUGS (1)
  1. ALLOPURINOL. [Suspect]
     Active Substance: ALLOPURINOL
     Indication: GOUT
     Route: 048
     Dates: end: 2016

REACTIONS (1)
  - Penile ulceration [Recovered/Resolved]
